FAERS Safety Report 11864965 (Version 2)
Quarter: 2016Q1

REPORT INFORMATION
  Report Type: Spontaneous
  Country: US (occurrence: US)
  Receive Date: 20151223
  Receipt Date: 20160202
  Transmission Date: 20160526
  Serious: Yes (Death, Hospitalization, Other)
  Sender: FDA-Public Use
  Company Number: US-PFIZER INC-2015447317

PATIENT
  Age: 57 Year
  Sex: Female

DRUGS (15)
  1. DOCUSATE SODIUM. [Concomitant]
     Active Substance: DOCUSATE SODIUM
     Dosage: 100 MG, 2X/DAY
     Route: 048
  2. LISINOPRIL. [Concomitant]
     Active Substance: LISINOPRIL
     Dosage: 2.5 MG, 1X/DAY
     Route: 048
  3. INOSITOL [Concomitant]
     Active Substance: INOSITOL
     Indication: ANXIETY
     Dosage: 4000 MG, AS NEEDED (1 SCP ORALLY 3 TIMES A DAY OR MORE), MIX IN CALM TEA
     Route: 048
  4. IBRANCE [Suspect]
     Active Substance: PALBOCICLIB
     Indication: BREAST CANCER METASTATIC
     Dosage: UNK
  5. HYDROMORPHONE [Concomitant]
     Active Substance: HYDROMORPHONE
     Dosage: UNK (HALF A TABLET)
  6. BENZONATATE. [Concomitant]
     Active Substance: BENZONATATE
     Indication: COUGH
     Dosage: 100 MG, AS NEEDED (EVERY 8 HOURS)
     Route: 048
  7. COREG [Concomitant]
     Active Substance: CARVEDILOL
     Dosage: 3.125 MG, 2X/DAY
     Route: 048
  8. FENTANYL. [Concomitant]
     Active Substance: FENTANYL
     Dosage: UNK, 12 MCG/HR (1 PATCH/EVERY 72 HOURS)
     Route: 062
  9. ALBUTEROL. [Concomitant]
     Active Substance: ALBUTEROL
     Indication: DYSPNOEA
     Dosage: 2 DF, AS NEEDED (2 PUFF(S) INHALED EVERY 4 HOURS)
     Route: 055
  10. HYDROMORPHONE [Concomitant]
     Active Substance: HYDROMORPHONE
     Indication: PAIN
     Dosage: 2 MG, AS NEEDED (HALF A TABLET EVERY 4 HOURS)
     Route: 048
  11. LORAZEPAM. [Concomitant]
     Active Substance: LORAZEPAM
     Dosage: 0.5 MG, 1X/DAY
     Route: 048
  12. ONDANSETRON [Concomitant]
     Active Substance: ONDANSETRON
     Indication: NAUSEA
     Dosage: 8 MG, AS NEEDED (1 TAB(S)/EVERY 6 HOURS)
     Route: 048
  13. INOSITOL [Concomitant]
     Active Substance: INOSITOL
     Indication: SLEEP APNOEA SYNDROME
  14. POLYETHYLENE GLYCOL [Concomitant]
     Active Substance: POLYETHYLENE GLYCOLS
     Dosage: 17 G, AS NEEDED (2 TIMES A DAY)
     Route: 048
  15. ADVAIR HFA [Concomitant]
     Active Substance: FLUTICASONE PROPIONATE\SALMETEROL XINAFOATE
     Dosage: UNK, 2X/DAY (FLUTICASONE PROPIONATE 250 MCG-50 MCG SALMETEROL XINAFOATE)
     Route: 055

REACTIONS (16)
  - Breast cancer metastatic [Fatal]
  - Asthenia [Unknown]
  - Hypercalcaemia [Unknown]
  - Acute respiratory failure [Unknown]
  - Anaemia [Unknown]
  - Hypotension [Recovered/Resolved]
  - Dyspnoea [Unknown]
  - Disease progression [Fatal]
  - Pleural effusion [Unknown]
  - Confusional state [Recovering/Resolving]
  - Fatigue [Unknown]
  - Cough [Unknown]
  - Encephalopathy [Unknown]
  - Empyema [Unknown]
  - Mental status changes [Unknown]
  - Depression [Unknown]
